FAERS Safety Report 20056580 (Version 2)
Quarter: 2021Q4

REPORT INFORMATION
  Report Type: Spontaneous
  Country: AU (occurrence: AU)
  Receive Date: 20211111
  Receipt Date: 20211123
  Transmission Date: 20220303
  Serious: Yes (Other)
  Sender: FDA-Public Use
  Company Number: AU-NOVARTISPH-NVSC2021AU256645

PATIENT
  Sex: Female

DRUGS (2)
  1. CYCLOSPORINE [Suspect]
     Active Substance: CYCLOSPORINE
     Indication: Product used for unknown indication
     Dosage: UNK
     Route: 065
  2. METHOTREXATE [Suspect]
     Active Substance: METHOTREXATE
     Indication: Product used for unknown indication
     Dosage: UNK
     Route: 065

REACTIONS (4)
  - Psoriatic arthropathy [Unknown]
  - Psoriasis [Unknown]
  - Nail disorder [Unknown]
  - Treatment failure [Unknown]
